FAERS Safety Report 4866129-9 (Version None)
Quarter: 2005Q4

REPORT INFORMATION
  Report Type: 
  Country: None (occurrence: None)
  Receive Date: 20051227
  Receipt Date: 20051220
  Transmission Date: 20060501
  Serious: Yes (Other)
  Sender: FDA-Public Use
  Company Number: US-AVENTIS-200520707US

PATIENT
  Age: 53 Year
  Sex: Male

DRUGS (3)
  1. KETEK [Suspect]
     Indication: BRONCHITIS
     Dates: start: 20051209, end: 20051209
  2. MICARDIS [Concomitant]
     Indication: HYPERTENSION
     Dosage: DOSE: UNKNOWN
  3. HYDROCHLOROTHIAZIDE [Concomitant]
     Indication: HYPERTENSION
     Dosage: DOSE: UNKNOWN

REACTIONS (2)
  - DIPLOPIA [None]
  - URINARY RETENTION [None]
